FAERS Safety Report 9547533 (Version 1)
Quarter: 2013Q2

REPORT INFORMATION
  Report Type: Spontaneous
  Country: US (occurrence: None)
  Receive Date: 20130606
  Receipt Date: 20130606
  Transmission Date: 20140414
  Serious: Yes (Hospitalization)
  Sender: FDA-Public Use
  Company Number: 163-POMAL-13041848

PATIENT
  Sex: Male

DRUGS (9)
  1. POMALYST [Suspect]
     Indication: PLASMA CELL MYELOMA
     Dosage: 4 MG,  21 IN 21 D,  PO?03/04/2013 - TEMPORARILY INTERRUPTED
     Route: 048
     Dates: start: 20130304
  2. ALBUTEROL SULFATE (SALBUTAMOL SULFATE) [Concomitant]
  3. ALPHA LIPOIC ACID (THIOCTIC ACID) [Concomitant]
  4. BACTRIM (BACTRIM) (SULFAMETHOXAZOLE, TRIMETHOPRIM) [Concomitant]
  5. CYCLOPHOSPHAMIDE (CYCLOPHOSPHAMIDE) [Concomitant]
  6. DEXAMETHAXONE (DEXAMETHASONE) [Concomitant]
  7. DUONEB (COMBIVENT) [Concomitant]
  8. JANTOVEN (WARFARIN SODIUM) [Concomitant]
  9. OXYCODONE/ACETAMINOPHEN (OXYCOCET) [Concomitant]

REACTIONS (3)
  - Lung infection [None]
  - Platelet count decreased [None]
  - Diarrhoea [None]
